FAERS Safety Report 23831045 (Version 3)
Quarter: 2024Q3

REPORT INFORMATION
  Report Type: Spontaneous
  Country: IN (occurrence: IN)
  Receive Date: 20240508
  Receipt Date: 20240903
  Transmission Date: 20241016
  Serious: Yes (Other)
  Sender: PFIZER
  Company Number: IN-PFIZER INC-PV202400059133

PATIENT
  Age: 38 Year
  Sex: Female

DRUGS (1)
  1. LORLATINIB [Suspect]
     Active Substance: LORLATINIB
     Indication: Lung neoplasm malignant
     Dosage: 100 MG, 1X/DAY
     Route: 048
     Dates: start: 20240227

REACTIONS (3)
  - Blood pressure diastolic increased [Recovered/Resolved]
  - Blood pressure systolic increased [Unknown]
  - Weight increased [Unknown]

NARRATIVE: CASE EVENT DATE: 20240821
